FAERS Safety Report 6244896-X (Version None)
Quarter: 2009Q2

REPORT INFORMATION
  Report Type: 
  Country: None (occurrence: None)
  Receive Date: 20090623
  Receipt Date: 20090623
  Transmission Date: 20091009
  Serious: Yes (Other)
  Sender: FDA-Public Use
  Company Number: None

PATIENT
  Age: 75 Year
  Sex: Female
  Weight: 61.2356 kg

DRUGS (1)
  1. GLYCOLAX [Suspect]
     Indication: CONSTIPATION
     Dosage: 17 GMS 1XD PO
     Route: 048
     Dates: start: 20090613, end: 20090618

REACTIONS (7)
  - BLOOD PRESSURE INCREASED [None]
  - HAEMORRHAGE [None]
  - JOINT SWELLING [None]
  - OEDEMA PERIPHERAL [None]
  - OROPHARYNGEAL DISCOMFORT [None]
  - RASH ERYTHEMATOUS [None]
  - RASH PRURITIC [None]
